FAERS Safety Report 23493439 (Version 1)
Quarter: 2024Q1

REPORT INFORMATION
  Report Type: Spontaneous
  Country: US (occurrence: None)
  Receive Date: 20240206
  Receipt Date: 20240206
  Transmission Date: 20240409
  Serious: Yes (Other)
  Sender: FDA-Public Use
  Company Number: None

PATIENT
  Age: 87 Year
  Sex: Male

DRUGS (1)
  1. FARICIMAB [Suspect]
     Active Substance: FARICIMAB
     Indication: Neovascular age-related macular degeneration
     Dates: start: 20230905, end: 20230905

REACTIONS (4)
  - Eye inflammation [None]
  - Ocular procedural complication [None]
  - Post procedural complication [None]
  - Antinuclear antibody positive [None]

NARRATIVE: CASE EVENT DATE: 20230905
